FAERS Safety Report 21466593 (Version 1)
Quarter: 2022Q4

REPORT INFORMATION
  Report Type: Spontaneous
  Country: US (occurrence: None)
  Receive Date: 20221014
  Receipt Date: 20221014
  Transmission Date: 20230113
  Serious: Yes (Hospitalization)
  Sender: FDA-Public Use
  Company Number: None

PATIENT
  Age: 58 Year
  Sex: Male

DRUGS (20)
  1. OPSUMIT [Suspect]
     Active Substance: MACITENTAN
     Indication: Pulmonary arterial hypertension
     Dosage: FREQUENCY : DAILY;?
     Route: 048
  2. ADEMPAS [Concomitant]
     Active Substance: RIOCIGUAT
  3. ALBUTEROL [Concomitant]
     Active Substance: ALBUTEROL
  4. FLONASE [Concomitant]
     Active Substance: FLUTICASONE PROPIONATE
  5. WIXELA INHUB [Concomitant]
     Active Substance: FLUTICASONE PROPIONATE\SALMETEROL XINAFOATE
  6. SPIRIVA RESPIMAT [Concomitant]
     Active Substance: TIOTROPIUM BROMIDE
  7. CRESTOR [Concomitant]
     Active Substance: ROSUVASTATIN CALCIUM
  8. ABILIFY [Concomitant]
     Active Substance: ARIPIPRAZOLE
  9. K-TAB [Concomitant]
     Active Substance: POTASSIUM CHLORIDE
  10. METFORMIN [Concomitant]
     Active Substance: METFORMIN HYDROCHLORIDE
  11. WARFARIN [Concomitant]
     Active Substance: WARFARIN
  12. VENLAFAXINE [Concomitant]
     Active Substance: VENLAFAXINE HYDROCHLORIDE
  13. METOLAZONE [Concomitant]
     Active Substance: METOLAZONE
  14. VITAMIN C [Concomitant]
     Active Substance: ASCORBIC ACID
  15. OMEPRAZOLE [Concomitant]
     Active Substance: OMEPRAZOLE
  16. SPIRONOLACTONE [Concomitant]
     Active Substance: SPIRONOLACTONE
  17. PROZAC [Concomitant]
     Active Substance: FLUOXETINE HYDROCHLORIDE
  18. LASIX [Concomitant]
     Active Substance: FUROSEMIDE
  19. VITAMIN D [Concomitant]
     Active Substance: VITAMIN D NOS
  20. VITAMIN B COMPLEX [Concomitant]
     Active Substance: CYANOCOBALAMIN\DEXPANTHENOL\NIACINAMIDE\PYRIDOXINE HYDROCHLORIDE\RIBOFLAVIN 5^-PHOSPHATE SODIUM\THIA

REACTIONS (7)
  - Acute respiratory failure [None]
  - Cardiac failure congestive [None]
  - Product use issue [None]
  - Bacteraemia [None]
  - Dyspnoea [None]
  - Hypervolaemia [None]
  - Pneumonia [None]

NARRATIVE: CASE EVENT DATE: 20220908
